FAERS Safety Report 18428814 (Version 2)
Quarter: 2020Q4

REPORT INFORMATION
  Report Type: Spontaneous
  Country: MY (occurrence: MY)
  Receive Date: 20201026
  Receipt Date: 20201102
  Transmission Date: 20210114
  Serious: Yes (Hospitalization)
  Sender: FDA-Public Use
  Company Number: MY-MYLANLABS-2020M1089753

PATIENT
  Sex: Male

DRUGS (5)
  1. CELOVAN [Suspect]
     Active Substance: VANCOMYCIN
     Indication: OSTEOMYELITIS CHRONIC
     Dosage: UNK, 1 G STAT THEN 500MG TDS
     Route: 042
     Dates: start: 20200728, end: 20200730
  2. CELOVAN [Suspect]
     Active Substance: VANCOMYCIN
     Dosage: 500 MILLIGRAM, QID
     Route: 042
     Dates: start: 20200730, end: 20200806
  3. PARACETAMOL [Concomitant]
     Active Substance: ACETAMINOPHEN
     Dosage: 1 GRAM, QID
     Route: 048
     Dates: start: 20200727, end: 20200728
  4. TRAMADOL. [Concomitant]
     Active Substance: TRAMADOL
     Dosage: 50 MILLIGRAM, TID
     Route: 048
     Dates: start: 20200727, end: 20200728
  5. CELOVAN [Suspect]
     Active Substance: VANCOMYCIN
     Dosage: 500 MILLIGRAM, TID
     Route: 042
     Dates: start: 20200806, end: 20200810

REACTIONS (2)
  - Leukopenia [Recovered/Resolved]
  - Neutropenia [Recovered/Resolved]

NARRATIVE: CASE EVENT DATE: 2020
